FAERS Safety Report 18971890 (Version 5)
Quarter: 2021Q2

REPORT INFORMATION
  Report Type: Report from Study
  Country: US (occurrence: US)
  Receive Date: 20210305
  Receipt Date: 20210608
  Transmission Date: 20210717
  Serious: Yes (Death, Hospitalization, Other)
  Sender: FDA-Public Use
  Company Number: US-IPSEN BIOPHARMACEUTICALS, INC.-2021-05557

PATIENT
  Age: 54 Year
  Sex: Female
  Weight: 85.63 kg

DRUGS (3)
  1. SOMATULINE DEPOT [Suspect]
     Active Substance: LANREOTIDE ACETATE
     Indication: ACROMEGALY
     Dosage: 90 MG EVERY 3 WEEKS
     Route: 058
     Dates: start: 20190222
  2. SOMATULINE DEPOT [Suspect]
     Active Substance: LANREOTIDE ACETATE
     Route: 058
  3. SOMATULINE DEPOT [Suspect]
     Active Substance: LANREOTIDE ACETATE
     Route: 058

REACTIONS (8)
  - Ovarian cancer recurrent [Unknown]
  - White blood cell disorder [Not Recovered/Not Resolved]
  - Death [Fatal]
  - Platelet count abnormal [Not Recovered/Not Resolved]
  - Off label use [Unknown]
  - Surgery [Unknown]
  - Ovarian cancer metastatic [Unknown]
  - Cerebrovascular accident [Not Recovered/Not Resolved]

NARRATIVE: CASE EVENT DATE: 2021
